FAERS Safety Report 13549195 (Version 1)
Quarter: 2017Q2

REPORT INFORMATION
  Report Type: Spontaneous
  Country: US (occurrence: US)
  Receive Date: 20170516
  Receipt Date: 20170516
  Transmission Date: 20170830
  Serious: No
  Sender: FDA-Public Use
  Company Number: US-B.I. PHARMACEUTICALS,INC./RIDGEFIELD-2017-BI-026900

PATIENT
  Age: 46 Year
  Sex: Female

DRUGS (4)
  1. VENTOLIN [Concomitant]
     Active Substance: ALBUTEROL SULFATE
     Indication: INHALATION THERAPY
     Dosage: 2 PUFFS EVERY 4 HOURS AS NEEDED;  FORM STRENGTH: 90MCG; FORMULATION: INHALATION AEROSOL
     Route: 055
     Dates: start: 1997
  2. ALBUTEROL FOR NEBULIZER [Concomitant]
     Indication: ASTHMA
     Dosage: AS NEEDED;  FORM STRENGTH: O.083%,2.5MG/1ML; FORMULATION: INHALATION AEROSOL
     Route: 055
  3. SPIRIVA [Suspect]
     Active Substance: TIOTROPIUM BROMIDE MONOHYDRATE
     Indication: ASTHMA
     Dosage: ONCE DAILY;  FORM STRENGTH: 18 MCG; FORMULATION: CAPSULE? ADMINISTRATION CORRECT? YES ?ACTION(S) TAK
     Route: 055
     Dates: start: 20140916, end: 20140919
  4. FLOVENT HFA [Concomitant]
     Active Substance: FLUTICASONE PROPIONATE
     Indication: PROPHYLAXIS
     Dosage: 1 PUFF BY MOUTH DAILY;  FORM STRENGTH: 110MCG; FORMULATION: INHALATION AEROSOL
     Route: 055

REACTIONS (2)
  - Vision blurred [Not Recovered/Not Resolved]
  - Off label use [Unknown]

NARRATIVE: CASE EVENT DATE: 20140916
